FAERS Safety Report 4722230-1 (Version None)
Quarter: 2005Q3

REPORT INFORMATION
  Report Type: 
  Country: None (occurrence: None)
  Receive Date: 20050722
  Receipt Date: 20040913
  Transmission Date: 20060218
  Serious: No
  Sender: FDA-Public Use
  Company Number: US-GLAXOSMITHKLINE-A0525448A

PATIENT
  Age: 12 Year
  Sex: Female

DRUGS (6)
  1. AVANDIA [Suspect]
     Dosage: 4MG PER DAY
     Route: 048
     Dates: start: 20040521
  2. SPIRONOLACTONE [Concomitant]
  3. TRAZODONE HCL [Concomitant]
  4. TRILEPTAL [Concomitant]
  5. SYNTHROID [Concomitant]
  6. WELLBUTRIN [Concomitant]

REACTIONS (1)
  - PERSONALITY CHANGE [None]
